FAERS Safety Report 11655636 (Version 1)
Quarter: 2015Q4

REPORT INFORMATION
  Report Type: Spontaneous
  Country: US (occurrence: US)
  Receive Date: 20151023
  Receipt Date: 20151023
  Transmission Date: 20160304
  Serious: No
  Sender: FDA-Public Use
  Company Number: US-ASTELLAS-2015US005995

PATIENT
  Sex: Female

DRUGS (1)
  1. MYCAMINE [Suspect]
     Active Substance: MICAFUNGIN SODIUM
     Indication: PRODUCT USED FOR UNKNOWN INDICATION
     Dosage: UNK, UNKNOWN FREQ.
     Route: 042
     Dates: start: 20140220

REACTIONS (6)
  - Leukoplakia oral [Unknown]
  - Fungal infection [Unknown]
  - Disease recurrence [Unknown]
  - Incorrect product storage [Unknown]
  - Throat irritation [Unknown]
  - Dysphagia [Unknown]
